FAERS Safety Report 9586370 (Version 1)
Quarter: 2013Q4

REPORT INFORMATION
  Report Type: Report from Study
  Country: BR (occurrence: BR)
  Receive Date: 20131003
  Receipt Date: 20131003
  Transmission Date: 20140711
  Serious: Yes (Other)
  Sender: FDA-Public Use
  Company Number: PHHY2013BR107197

PATIENT
  Age: 61 Year
  Sex: Male

DRUGS (6)
  1. BUFFERIN [Suspect]
     Dosage: 100 MG, QD
  2. CITALOPRAM [Suspect]
     Dosage: 20 MG, QD
  3. CARVEDILOL [Suspect]
     Dosage: 6.25 MG, BID (EVERY 12 HOURS)
  4. BUDESONIDE, FORMOTEROL FUMARATE [Suspect]
  5. FUROSEMIDE [Suspect]
     Dosage: 20 MG, QD
  6. SPIRONOLACTONE [Suspect]
     Dosage: 25 MG, QD

REACTIONS (16)
  - Chronic obstructive pulmonary disease [Unknown]
  - Breath sounds abnormal [Unknown]
  - Wheezing [Recovering/Resolving]
  - Productive cough [Unknown]
  - Tachypnoea [Recovering/Resolving]
  - Cough [Unknown]
  - Lung hyperinflation [Unknown]
  - Nasopharyngitis [Recovered/Resolved]
  - Throat irritation [Unknown]
  - Oropharyngeal pain [Unknown]
  - Odynophagia [Recovering/Resolving]
  - Rhinorrhoea [Recovering/Resolving]
  - Secretion discharge [Unknown]
  - Malaise [Recovered/Resolved]
  - Dyspepsia [Recovering/Resolving]
  - Fatigue [Recovering/Resolving]
